FAERS Safety Report 10209821 (Version 1)
Quarter: 2014Q2

REPORT INFORMATION
  Report Type: Report from Study
  Country: US (occurrence: US)
  Receive Date: 20140602
  Receipt Date: 20140602
  Transmission Date: 20141212
  Serious: Yes (Other)
  Sender: FDA-Public Use
  Company Number: US-ROCHE-1411171

PATIENT
  Age: 35 Year
  Sex: Female

DRUGS (3)
  1. HERCEPTIN [Suspect]
     Indication: BREAST CANCER METASTATIC
     Dosage: 1L DOSE
     Route: 065
  2. PARAPLATIN [Concomitant]
  3. TAXOL [Concomitant]

REACTIONS (2)
  - Cardiotoxicity [Unknown]
  - Hepatic function abnormal [Unknown]
